FAERS Safety Report 8377284-0 (Version None)
Quarter: 2012Q2

REPORT INFORMATION
  Report Type: 
  Country: None (occurrence: None)
  Receive Date: 20120522
  Receipt Date: 20120514
  Transmission Date: 20120825
  Serious: Yes (Other)
  Sender: FDA-Public Use
  Company Number: US-ROCHE-1040766

PATIENT
  Sex: Male
  Weight: 90.8 kg

DRUGS (3)
  1. ACCUTANE [Suspect]
     Dates: start: 19940701, end: 19941001
  2. ACCUTANE [Suspect]
     Dates: end: 19960101
  3. ACCUTANE [Suspect]
     Indication: ACNE
     Dates: start: 19920101, end: 19920801

REACTIONS (6)
  - IRRITABLE BOWEL SYNDROME [None]
  - DEPRESSION [None]
  - COLITIS ULCERATIVE [None]
  - INFLAMMATORY BOWEL DISEASE [None]
  - SUICIDAL IDEATION [None]
  - GALLBLADDER DISORDER [None]
